FAERS Safety Report 11476863 (Version 1)
Quarter: 2015Q3

REPORT INFORMATION
  Report Type: Spontaneous
  Country: US (occurrence: US)
  Receive Date: 20150909
  Receipt Date: 20150909
  Transmission Date: 20151125
  Serious: No
  Sender: FDA-Public Use
  Company Number: US-JAZZ-2014-US-009142

PATIENT
  Age: 33 Year
  Sex: Female

DRUGS (5)
  1. KLONOPIN [Suspect]
     Active Substance: CLONAZEPAM
     Indication: SLEEP-RELATED EATING DISORDER
  2. XYREM [Suspect]
     Active Substance: SODIUM OXYBATE
     Dosage: 4.5 G, BID
     Route: 048
     Dates: start: 2014
  3. XYREM [Suspect]
     Active Substance: SODIUM OXYBATE
     Dosage: DOSE ADJUSTMENTS
     Route: 048
  4. XYREM [Suspect]
     Active Substance: SODIUM OXYBATE
     Indication: NARCOLEPSY
     Dosage: 2.25 G, BID
     Route: 048
     Dates: start: 201401, end: 2014
  5. KLONOPIN [Suspect]
     Active Substance: CLONAZEPAM
     Indication: BACK DISORDER

REACTIONS (4)
  - Back disorder [Unknown]
  - Hypersomnia [Unknown]
  - Sleep-related eating disorder [Unknown]
  - Cough [Unknown]

NARRATIVE: CASE EVENT DATE: 20140625
